FAERS Safety Report 9066996 (Version 2)
Quarter: 2013Q1

REPORT INFORMATION
  Report Type: Report from Study
  Country: US (occurrence: US)
  Receive Date: 20130214
  Receipt Date: 20130220
  Transmission Date: 20140127
  Serious: Yes (Hospitalization, Disabling)
  Sender: FDA-Public Use
  Company Number: US-JNJFOC-20130205321

PATIENT
  Age: 16 None
  Sex: Female
  Weight: 37.1 kg

DRUGS (13)
  1. REMICADE [Suspect]
     Indication: INFLAMMATORY BOWEL DISEASE
     Route: 042
     Dates: start: 200503, end: 20080902
  2. LOPERAMIDE [Concomitant]
  3. BUDESONIDE [Concomitant]
  4. CIMZIA [Concomitant]
     Dates: start: 20120723
  5. CIMZIA [Concomitant]
     Dates: start: 20101029
  6. CITALOPRAM [Concomitant]
  7. FOLATE [Concomitant]
  8. UNKNOWN ALLERGY SHOTS [Concomitant]
  9. BIRTH CONTROL PILLS [Concomitant]
  10. METHOTREXATE [Concomitant]
  11. MONTELUKAST [Concomitant]
  12. PRENATAL VITAMINS [Concomitant]
  13. FOLIC ACID [Concomitant]

REACTIONS (2)
  - Malnutrition [Recovered/Resolved]
  - Crohn^s disease [Recovered/Resolved]
